FAERS Safety Report 10052252 (Version 1)
Quarter: 2014Q2

REPORT INFORMATION
  Report Type: Spontaneous
  Country: US (occurrence: US)
  Receive Date: 20140402
  Receipt Date: 20140402
  Transmission Date: 20141212
  Serious: No
  Sender: FDA-Public Use
  Company Number: US-009507513-1403USA007175

PATIENT
  Age: 61 Year
  Sex: Male

DRUGS (3)
  1. PEGINTRON [Suspect]
     Indication: CHRONIC HEPATITIS C
     Dosage: UNK
     Route: 058
  2. PEGINTRON [Suspect]
     Dosage: 150/0.5
     Route: 058
     Dates: start: 20130219
  3. SOVALDI [Concomitant]
     Dosage: 400 MG, QD

REACTIONS (5)
  - Drug intolerance [Recovering/Resolving]
  - Chills [Recovering/Resolving]
  - Bone pain [Recovering/Resolving]
  - Injection site haemorrhage [Recovered/Resolved]
  - Incorrect product storage [Unknown]
